FAERS Safety Report 21170020 (Version 1)
Quarter: 2022Q3

REPORT INFORMATION
  Report Type: Report from Study
  Country: FR (occurrence: FR)
  Receive Date: 20220804
  Receipt Date: 20220804
  Transmission Date: 20221027
  Serious: Yes (Other)
  Sender: FDA-Public Use
  Company Number: FR-EMA-DD-20220721-7182781-084317

PATIENT
  Sex: Female

DRUGS (2)
  1. ERTAPENEM [Suspect]
     Active Substance: ERTAPENEM
     Indication: Urinary tract infection enterococcal
     Dosage: 1 UNK, (1 G/D DILUTED IN 1% LIDOCAINE 3ML AND INJECTED SUBCUTANEOUSLY OVER 1 MINUTE)
     Route: 058
  2. LIDOCAINE [Suspect]
     Active Substance: LIDOCAINE
     Indication: Urinary tract infection enterococcal
     Dosage: 3 MILLILITER (UNK (ERTAPENEM 1 G/D) DILUTED IN 1% AND INJECTED OVER 1 MIN)
     Route: 058

REACTIONS (4)
  - Skin necrosis [Recovered/Resolved]
  - Off label use [Unknown]
  - Intentional product misuse [Recovered/Resolved]
  - Product use issue [Recovered/Resolved]
